FAERS Safety Report 10132111 (Version 1)
Quarter: 2014Q2

REPORT INFORMATION
  Report Type: Spontaneous
  Country: US (occurrence: US)
  Receive Date: 20140428
  Receipt Date: 20140428
  Transmission Date: 20141212
  Serious: Yes (Other)
  Sender: FDA-Public Use
  Company Number: US-PFIZER INC-2014116648

PATIENT
  Age: 50 Year
  Sex: Female
  Weight: 78.46 kg

DRUGS (6)
  1. EFFEXOR XR [Suspect]
     Indication: DEPRESSION
     Dosage: 37 MG, DAILY
     Dates: start: 201303
  2. EFFEXOR XR [Suspect]
     Dosage: 75 MG, UNK
  3. EFFEXOR XR [Suspect]
     Dosage: 150 MG, UNK
  4. EFFEXOR XR [Suspect]
     Dosage: 225 MG, UNK
  5. EFFEXOR XR [Suspect]
     Dosage: UNK
  6. VENLAFAXINE HCL [Suspect]
     Indication: DEPRESSION
     Dosage: 75 MG, DAILY

REACTIONS (2)
  - Anxiety [Unknown]
  - Post-traumatic stress disorder [Unknown]
